FAERS Safety Report 6495202-7 (Version None)
Quarter: 2009Q4

REPORT INFORMATION
  Report Type: 
  Country: None (occurrence: None)
  Receive Date: 20091214
  Receipt Date: 20090512
  Transmission Date: 20100525
  Serious: No
  Sender: FDA-Public Use
  Company Number: US-BRISTOL-MYERS SQUIBB COMPANY-14622138

PATIENT
  Age: 2 Decade
  Sex: Female

DRUGS (1)
  1. ABILIFY [Suspect]
     Dosage: 1 DF- 2MG OR 5MG DAILY; STARTED TAKING 30MG DAILY AND STOPPED;

REACTIONS (1)
  - SOMNOLENCE [None]
